FAERS Safety Report 25892259 (Version 1)
Quarter: 2025Q4

REPORT INFORMATION
  Report Type: Spontaneous
  Country: US (occurrence: US)
  Receive Date: 20251007
  Receipt Date: 20251007
  Transmission Date: 20260117
  Serious: No
  Sender: INCYTE
  Company Number: US-EVENT-004381

PATIENT
  Age: 33 Year

DRUGS (1)
  1. OPZELURA [Suspect]
     Active Substance: RUXOLITINIB PHOSPHATE
     Indication: Product used for unknown indication
     Dosage: 1.5 PERCENT, APPLY A THIN LAYER TO AFFECTED AREA(S) OF RASH ON FACE TWICE DAILY FOR FL AS DIRECTED
     Route: 065

REACTIONS (1)
  - Foot fracture [Unknown]
